FAERS Safety Report 25598832 (Version 2)
Quarter: 2025Q3

REPORT INFORMATION
  Report Type: Spontaneous
  Country: US (occurrence: US)
  Receive Date: 20250724
  Receipt Date: 20250805
  Transmission Date: 20251021
  Serious: No
  Sender: ROCHE
  Company Number: US-ROCHE-10000338338

PATIENT
  Sex: Female

DRUGS (1)
  1. XOLAIR [Suspect]
     Active Substance: OMALIZUMAB
     Indication: Eczema
     Dosage: STRENGTH: 300MG/2ML
     Route: 058
     Dates: start: 202503

REACTIONS (6)
  - Eczema [Unknown]
  - Urticaria [Not Recovered/Not Resolved]
  - Butterfly rash [Not Recovered/Not Resolved]
  - Swelling of eyelid [Not Recovered/Not Resolved]
  - Histamine level increased [Unknown]
  - Breast mass [Unknown]
